FAERS Safety Report 9010495 (Version 1)
Quarter: 2013Q1

REPORT INFORMATION
  Report Type: Report from Study
  Country: DE (occurrence: DE)
  Receive Date: 20130109
  Receipt Date: 20130109
  Transmission Date: 20140127
  Serious: Yes (Other)
  Sender: FDA-Public Use
  Company Number: DE-B.I. PHARMACEUTICALS,INC./RIDGEFIELD-2013-DE-00037DE

PATIENT
  Age: 85 Year
  Sex: Female
  Weight: 85 kg

DRUGS (2)
  1. PRADAXA [Suspect]
     Dosage: 3 ANZ
     Route: 048
     Dates: start: 20130104
  2. NOVALGIN [Suspect]
     Dosage: 30 ANZ
     Route: 048
     Dates: start: 20130104

REACTIONS (1)
  - Suicide attempt [Unknown]
